FAERS Safety Report 17171603 (Version 1)
Quarter: 2019Q4

REPORT INFORMATION
  Report Type: Spontaneous
  Country: DE (occurrence: DE)
  Receive Date: 20191218
  Receipt Date: 20191218
  Transmission Date: 20200122
  Serious: Yes (Hospitalization)
  Sender: FDA-Public Use
  Company Number: DE-JNJFOC-20191221932

PATIENT
  Age: 77 Year
  Sex: Female
  Weight: 70 kg

DRUGS (13)
  1. RIVAROXABAN [Suspect]
     Active Substance: RIVAROXABAN
     Indication: PRODUCT USED FOR UNKNOWN INDICATION
     Dosage: 15 MG, QD
     Route: 048
  2. PANTOPRAZOLE [Concomitant]
     Active Substance: PANTOPRAZOLE
     Dosage: 40 MG, QD
     Route: 048
  3. TORASEMID [Concomitant]
     Active Substance: TORSEMIDE
     Dosage: 50 MG, BID
     Route: 048
  4. DIPIPERON [Concomitant]
     Active Substance: PIPAMPERONE
     Dosage: 20 MG, BID
     Route: 048
  5. BISOPROLOL [Concomitant]
     Active Substance: BISOPROLOL
     Dosage: 5 MG, QD
     Route: 048
  6. CALCIUM PHOSPHATE W/COLECALCIFEROL [Concomitant]
     Dosage: 500|400 MG/I.E., 1-0-0-0, TABLETTEN
     Route: 048
  7. FOLIC ACID. [Concomitant]
     Active Substance: FOLIC ACID
     Dosage: 5 MG, QD
     Route: 048
  8. AGOMELATINE [Concomitant]
     Active Substance: AGOMELATINE
     Dosage: 25 MG, QD
     Route: 048
  9. LACTULOSE. [Concomitant]
     Active Substance: LACTULOSE
     Dosage: PNR, SIRUP
     Route: 048
  10. SILDENAFIL. [Concomitant]
     Active Substance: SILDENAFIL
     Dosage: 20 MG, TID
     Route: 048
  11. ABTEI VITAMIN B KOMPLEX FORTE [Concomitant]
     Dosage: NK MG, 1-0-0-0, KAPSELN
     Route: 048
  12. RAMIPRIL. [Concomitant]
     Active Substance: RAMIPRIL
     Dosage: 2.5 MG, QD
     Route: 048
  13. SPIRONOLACTON [Concomitant]
     Active Substance: SPIRONOLACTONE
     Dosage: 50 MG, BID
     Route: 048

REACTIONS (4)
  - Depressed level of consciousness [Unknown]
  - Anaemia [Unknown]
  - Hypotension [Unknown]
  - Electrolyte imbalance [Unknown]
